FAERS Safety Report 23089256 (Version 1)
Quarter: 2023Q4

REPORT INFORMATION
  Report Type: Spontaneous
  Country: US (occurrence: None)
  Receive Date: 20231019
  Receipt Date: 20231019
  Transmission Date: 20240109
  Serious: Yes (Life-Threatening, Hospitalization)
  Sender: FDA-Public Use
  Company Number: None

PATIENT
  Age: 57 Year
  Sex: Female

DRUGS (1)
  1. IRON SUCROSE [Suspect]
     Active Substance: IRON SUCROSE
     Dosage: FREQUENCY : ONCE;?
     Route: 042
     Dates: start: 20221206, end: 20221206

REACTIONS (7)
  - Back pain [None]
  - Dizziness [None]
  - Oedema peripheral [None]
  - Hypotension [None]
  - Rash [None]
  - Sinus tachycardia [None]
  - Ventricular extrasystoles [None]

NARRATIVE: CASE EVENT DATE: 20221206
